FAERS Safety Report 5342516-X (Version None)
Quarter: 2007Q2

REPORT INFORMATION
  Report Type: 
  Country: None (occurrence: None)
  Receive Date: 20070601
  Receipt Date: 20070524
  Transmission Date: 20071010
  Serious: Yes (Disabling, Other)
  Sender: FDA-Public Use
  Company Number: BR-PFIZER INC-2007022440

PATIENT
  Sex: Female

DRUGS (8)
  1. ZOLOFT [Suspect]
     Indication: DEPRESSION
     Route: 048
     Dates: start: 20020101, end: 20020101
  2. FELDENE [Suspect]
     Indication: BURSITIS
  3. ESTRADIOL [Suspect]
     Indication: ALOPECIA
     Route: 061
     Dates: start: 20070201, end: 20070518
  4. PIL-FOOD [Suspect]
     Indication: HYPERSENSITIVITY
     Route: 048
  5. ALL OTHER THERAPEUTIC PRODUCTS [Suspect]
     Indication: HYPERSENSITIVITY
     Route: 048
     Dates: start: 20060101, end: 20070201
  6. PANTOGAR [Suspect]
     Indication: ALOPECIA
     Route: 048
  7. AMITRIPTYLINE HCL [Concomitant]
     Route: 048
  8. RIVOTRIL [Concomitant]
     Route: 048
     Dates: start: 20020101

REACTIONS (31)
  - ALOPECIA [None]
  - ANGIOPATHY [None]
  - BACK PAIN [None]
  - BLOOD PRESSURE INCREASED [None]
  - CARDIAC VALVE DISEASE [None]
  - COORDINATION ABNORMAL [None]
  - COUGH [None]
  - DISTURBANCE IN ATTENTION [None]
  - DIZZINESS [None]
  - DRUG HYPERSENSITIVITY [None]
  - DRUG INEFFECTIVE [None]
  - DYSPNOEA [None]
  - EYE DISCHARGE [None]
  - FEAR [None]
  - HEADACHE [None]
  - HEART RATE IRREGULAR [None]
  - HYPERSENSITIVITY [None]
  - LABYRINTHITIS [None]
  - LARYNGEAL OEDEMA [None]
  - MALAISE [None]
  - MEMORY IMPAIRMENT [None]
  - MIOSIS [None]
  - NASOPHARYNGITIS [None]
  - NECK PAIN [None]
  - OCULAR HYPERAEMIA [None]
  - PAIN OF SKIN [None]
  - PRURITUS [None]
  - PYREXIA [None]
  - SKIN DISORDER [None]
  - SLEEP DISORDER [None]
  - STRESS [None]
